FAERS Safety Report 24001766 (Version 3)
Quarter: 2024Q3

REPORT INFORMATION
  Report Type: Report from Study
  Country: CO (occurrence: CO)
  Receive Date: 20240622
  Receipt Date: 20240822
  Transmission Date: 20241017
  Serious: Yes (Life-Threatening, Other)
  Sender: ABBVIE
  Company Number: CO-ABBVIE-5592217

PATIENT
  Sex: Female
  Weight: 55 kg

DRUGS (15)
  1. SKYRIZI [Suspect]
     Active Substance: RISANKIZUMAB-RZAA
     Indication: Psoriasis
     Dosage: FORM STRENGTH150 MG
     Route: 058
     Dates: start: 20220723, end: 20230925
  2. SKYRIZI [Suspect]
     Active Substance: RISANKIZUMAB-RZAA
     Dosage: FORM STRENGTH150 MG
     Route: 058
     Dates: end: 20240306
  3. BISOPROLOL [Suspect]
     Active Substance: BISOPROLOL\BISOPROLOL FUMARATE
     Indication: Arrhythmia
     Dosage: FREQUENCY TEXT: DAILY
     Dates: start: 202406
  4. BISOPROLOL [Suspect]
     Active Substance: BISOPROLOL\BISOPROLOL FUMARATE
     Indication: Arrhythmia
     Dosage: LAST ADMIN DATE- 2024?FREQUENCY TEXT: DAILY
     Route: 048
     Dates: start: 20240601
  5. OXYGEN [Suspect]
     Active Substance: OXYGEN
     Indication: Product used for unknown indication
     Dosage: LAST ADMIN DATE: 2024
     Route: 065
     Dates: start: 20240603
  6. CALCIUM [Concomitant]
     Active Substance: CALCIUM
     Indication: Product used for unknown indication
     Route: 048
  7. LEVOTHYROXINE [Concomitant]
     Active Substance: LEVOTHYROXINE\LEVOTHYROXINE SODIUM
     Indication: Hypothyroidism
     Dosage: MONDAY -SATURDAY 1 DOSE , SUNDAY 2 DOSES
     Route: 048
     Dates: start: 2023, end: 202405
  8. LEVOTHYROXINE [Concomitant]
     Active Substance: LEVOTHYROXINE\LEVOTHYROXINE SODIUM
     Indication: Hypothyroidism
     Route: 048
     Dates: start: 202405
  9. ACYCLOVIR [Concomitant]
     Active Substance: ACYCLOVIR
     Indication: Adjuvant therapy
     Dosage: FREQUENCY : IN THE MORNING AND AT NIGHT.
     Route: 061
     Dates: start: 202406
  10. CALCIUM CARBONATE\CHOLECALCIFEROL [Concomitant]
     Active Substance: CALCIUM CARBONATE\CHOLECALCIFEROL
     Indication: Osteoporosis
     Route: 048
     Dates: start: 202405
  11. CLOBETASOL PROPIONATE [Concomitant]
     Active Substance: CLOBETASOL PROPIONATE
     Indication: Adjuvant therapy
     Dosage: STOP DATE TEXT AFTER SKYRIZI
     Route: 061
  12. IPRATROPIUM BROMIDE [Concomitant]
     Active Substance: IPRATROPIUM BROMIDE\IPRATROPIUM BROMIDE ANHYDROUS
     Indication: Lung disorder
     Route: 055
     Dates: start: 2024
  13. NIFEDIPINE [Concomitant]
     Active Substance: NIFEDIPINE
     Indication: Product used for unknown indication
     Dosage: 1 UNKNOWN
     Route: 048
     Dates: start: 202407
  14. LOSARTAN [Concomitant]
     Active Substance: LOSARTAN\LOSARTAN POTASSIUM
     Indication: Product used for unknown indication
     Dosage: 1 UNKNOWN
     Route: 048
     Dates: start: 202407, end: 202408
  15. Aerovial [Concomitant]
     Indication: Lung disorder
     Route: 055
     Dates: start: 2024

REACTIONS (23)
  - Respiratory arrest [Unknown]
  - Headache [Recovering/Resolving]
  - Unevaluable event [Not Recovered/Not Resolved]
  - Hypothyroidism [Recovering/Resolving]
  - Psoriasis [Not Recovered/Not Resolved]
  - Unresponsive to stimuli [Unknown]
  - Platelet count decreased [Unknown]
  - Arrhythmia [Unknown]
  - Condition aggravated [Unknown]
  - Weight decreased [Unknown]
  - Chest pain [Recovered/Resolved]
  - Haemoglobin abnormal [Unknown]
  - Back pain [Unknown]
  - Heart rate decreased [Recovering/Resolving]
  - Bone density increased [Unknown]
  - Dyspnoea [Unknown]
  - Suffocation feeling [Recovered/Resolved]
  - Scar [Unknown]
  - Tremor [Recovering/Resolving]
  - Parkinson^s disease [Not Recovered/Not Resolved]
  - Oxygen saturation decreased [Recovering/Resolving]
  - Feeding disorder [Not Recovered/Not Resolved]
  - Chest pain [Recovering/Resolving]

NARRATIVE: CASE EVENT DATE: 20230101
